FAERS Safety Report 9726750 (Version 1)
Quarter: 2013Q4

REPORT INFORMATION
  Report Type: Spontaneous
  Country: CA (occurrence: CA)
  Receive Date: 20131203
  Receipt Date: 20131203
  Transmission Date: 20140711
  Serious: Yes (Disabling)
  Sender: FDA-Public Use
  Company Number: CA-ASTRAZENECA-2013SE87188

PATIENT
  Age: 47 Year
  Sex: Male
  Weight: 77.1 kg

DRUGS (3)
  1. CRESTOR [Suspect]
     Route: 048
  2. ADVIL COLD + SINUS [Concomitant]
  3. DIOVAN [Concomitant]

REACTIONS (1)
  - Tinnitus [Recovered/Resolved]
